FAERS Safety Report 7955780-5 (Version None)
Quarter: 2011Q4

REPORT INFORMATION
  Report Type: 
  Country: None (occurrence: None)
  Receive Date: 20111205
  Receipt Date: 20111129
  Transmission Date: 20120403
  Serious: Yes (Death, Hospitalization)
  Sender: FDA-Public Use
  Company Number: US-BRISTOL-MYERS SQUIBB COMPANY-15256670

PATIENT
  Age: 21 Year
  Sex: Male

DRUGS (5)
  1. DARVOCET [Concomitant]
     Dosage: QD 1DF:2 TABS
     Route: 048
  2. AVELOX [Concomitant]
     Dosage: 1DF=100 DOSE NOT SPECIFIED
     Dates: start: 20100809
  3. FLAGYL [Concomitant]
     Route: 048
  4. IPILIMUMAB [Suspect]
     Indication: MALIGNANT MELANOMA
     Dosage: NO OF COURSES: 1
     Route: 042
     Dates: start: 20100819, end: 20100819
  5. ZOFRAN [Concomitant]

REACTIONS (4)
  - NEOPLASM MALIGNANT [None]
  - ANAEMIA [None]
  - DUODENAL ULCER [None]
  - DIARRHOEA [None]
